FAERS Safety Report 6135217-1 (Version None)
Quarter: 2009Q1

REPORT INFORMATION
  Report Type: 
  Country: None (occurrence: None)
  Receive Date: 20090327
  Receipt Date: 20080410
  Transmission Date: 20090719
  Serious: No
  Sender: FDA-Public Use
  Company Number: US-TYCO HEALTHCARE/MALLINCKRODT-T200800674

PATIENT

DRUGS (3)
  1. OPTIMARK [Suspect]
     Indication: ANGIOGRAM
     Dosage: 1.5 ML/SEC FOR 15 ML VOLUME
     Route: 042
     Dates: start: 20080410, end: 20080410
  2. OPTIMARK [Suspect]
     Dosage: 0.5 ML/SEC FOR 15 ML VOLUME
     Route: 042
     Dates: start: 20080410, end: 20080410
  3. SODIUM CHLORIDE [Suspect]
     Indication: ANGIOGRAM
     Dosage: 0.5 ML/SEC FOR 20 ML VOLUME
     Route: 042
     Dates: start: 20080410, end: 20080410

REACTIONS (2)
  - DRUG ADMINISTRATION ERROR [None]
  - INJECTION SITE EXTRAVASATION [None]
